FAERS Safety Report 17054453 (Version 2)
Quarter: 2020Q1

REPORT INFORMATION
  Report Type: Spontaneous
  Country: JP (occurrence: JP)
  Receive Date: 20191120
  Receipt Date: 20200101
  Transmission Date: 20200409
  Serious: Yes (Death, Life-Threatening, Hospitalization)
  Sender: FDA-Public Use
  Company Number: JP-ASTRAZENECA-2019SF64367

PATIENT
  Age: 70 Year
  Sex: Female

DRUGS (1)
  1. FASENRA [Suspect]
     Active Substance: BENRALIZUMAB
     Indication: ASTHMA
     Dosage: 30.0MG UNKNOWN
     Route: 058
     Dates: start: 201805, end: 201910

REACTIONS (2)
  - Status asthmaticus [Not Recovered/Not Resolved]
  - Pneumonia [Fatal]

NARRATIVE: CASE EVENT DATE: 201910
